FAERS Safety Report 9105650 (Version 2)
Quarter: 2013Q1

REPORT INFORMATION
  Report Type: Spontaneous
  Country: DE (occurrence: DE)
  Receive Date: 20130220
  Receipt Date: 20130329
  Transmission Date: 20140127
  Serious: Yes (Life-Threatening)
  Sender: FDA-Public Use
  Company Number: DE-JNJFOC-20130208556

PATIENT
  Age: 90 Year
  Sex: Male
  Weight: 85 kg

DRUGS (2)
  1. XARELTO [Suspect]
     Indication: THROMBOSIS PROPHYLAXIS
     Route: 048
     Dates: start: 201209, end: 20130116
  2. ASS [Concomitant]
     Indication: CORONARY ARTERY DISEASE
     Route: 065

REACTIONS (1)
  - Splenic rupture [Unknown]
